FAERS Safety Report 8268276-0 (Version None)
Quarter: 2012Q2

REPORT INFORMATION
  Report Type: 
  Country: None (occurrence: None)
  Receive Date: 20120409
  Receipt Date: 20120330
  Transmission Date: 20120825
  Serious: Yes (Other)
  Sender: FDA-Public Use
  Company Number: PHHY2012AU027775

PATIENT
  Age: 55 Year
  Sex: Female

DRUGS (7)
  1. METFORMIN HCL [Concomitant]
     Dosage: 1 G, TID
  2. ETANERCEPT [Suspect]
     Indication: PSORIATIC ARTHROPATHY
     Dosage: UNK
     Dates: start: 20060301
  3. CANDESARTAN CILEXETIL [Concomitant]
     Dosage: 32 MG, QD
  4. METHOTREXATE [Suspect]
     Indication: PSORIATIC ARTHROPATHY
     Dosage: 5 MG, QW
  5. ETANERCEPT [Suspect]
     Dosage: 50 MG, QW
  6. NIFEDIPINE [Concomitant]
     Dosage: 10 MG, QD
  7. GLICLAZIDE [Concomitant]
     Dosage: 80 MG, QD

REACTIONS (6)
  - HYPERTENSION [None]
  - FUNDOSCOPY ABNORMAL [None]
  - RENAL IMPAIRMENT [None]
  - ANGIOTENSIN CONVERTING ENZYME INCREASED [None]
  - TUBULOINTERSTITIAL NEPHRITIS [None]
  - GRANULOMA [None]
